FAERS Safety Report 7625358-1 (Version None)
Quarter: 2011Q3

REPORT INFORMATION
  Report Type: 
  Country: None (occurrence: None)
  Receive Date: 20110721
  Receipt Date: 20110705
  Transmission Date: 20111222
  Serious: No
  Sender: FDA-Public Use
  Company Number: US-BAYER-2011-058295

PATIENT
  Age: 36 Year
  Sex: Female

DRUGS (4)
  1. VITAMIN D [Concomitant]
     Dosage: 1000 U, UNK
  2. BETASERON [Suspect]
     Dosage: 0.3 MG, QOD
     Route: 058
  3. OGESTREL 0.5/50-21 [Concomitant]
  4. CHANTIX [Concomitant]
     Dosage: 0.5 MG, UNK

REACTIONS (2)
  - NAUSEA [None]
  - MYALGIA [None]
